FAERS Safety Report 6164778-1 (Version None)
Quarter: 2009Q2

REPORT INFORMATION
  Report Type: 
  Country: None (occurrence: None)
  Receive Date: 20090423
  Receipt Date: 20090417
  Transmission Date: 20091009
  Serious: Yes (Death, Life-Threatening)
  Sender: FDA-Public Use
  Company Number: FR-ELI_LILLY_AND_COMPANY-FR200904004485

PATIENT
  Sex: Male
  Weight: 71.5 kg

DRUGS (19)
  1. DROTRECOGIN ALFA (ACTIVATED) [Suspect]
     Indication: SEPSIS
     Dosage: 0.24 MG/KG, EVERY HOUR
     Route: 042
     Dates: start: 20070818
  2. TIENAM [Concomitant]
     Indication: LUNG DISORDER
     Dates: start: 20070812, end: 20070817
  3. CIPROFLOXACIN HCL [Concomitant]
     Indication: LUNG DISORDER
     Dates: start: 20070812, end: 20070817
  4. ACETAMINOPHEN [Concomitant]
     Indication: PAIN
     Dates: start: 20070812, end: 20070817
  5. NEXIUM [Concomitant]
     Indication: ABDOMINAL PAIN UPPER
     Dates: start: 20070812, end: 20070817
  6. CORDARONE [Concomitant]
     Indication: ARRHYTHMIA
     Dates: start: 20070812
  7. LASIX [Concomitant]
     Indication: ANURIA
     Dates: end: 20070817
  8. HYPNOVEL [Concomitant]
     Indication: SEDATION
     Dates: start: 20070812, end: 20070817
  9. FENTANYL [Concomitant]
     Indication: SEDATION
     Dates: start: 20070812, end: 20070817
  10. INSULINE [Concomitant]
     Indication: BLOOD GLUCOSE ABNORMAL
     Dates: start: 20070812
  11. PREVISCAN [Concomitant]
     Dates: end: 20070812
  12. NORADRENALINE [Concomitant]
     Indication: SEPSIS
     Dates: start: 20070817
  13. VANCOMYCIN HCL [Concomitant]
     Indication: SEPSIS
     Dates: start: 20070817
  14. CLAFORAN [Concomitant]
     Indication: SEPSIS
     Dates: start: 20070817
  15. HYDROCORTISONE HEMISUCCINATE [Concomitant]
     Indication: SEPSIS
     Dates: start: 20070817, end: 20070818
  16. CALCIPARINE [Concomitant]
     Dates: start: 20070817, end: 20070817
  17. VOLUVEN [Concomitant]
     Indication: SEPSIS
     Dates: start: 20070817, end: 20070818
  18. DIPRIVAN [Concomitant]
     Indication: SEDATION
     Dates: start: 20070817, end: 20070818
  19. DEXAMETHASONE 4MG TAB [Concomitant]

REACTIONS (2)
  - INTRACRANIAL PRESSURE INCREASED [None]
  - SUBARACHNOID HAEMORRHAGE [None]
